FAERS Safety Report 23774274 (Version 1)
Quarter: 2024Q2

REPORT INFORMATION
  Report Type: Spontaneous
  Country: CA (occurrence: CA)
  Receive Date: 20240423
  Receipt Date: 20240423
  Transmission Date: 20240716
  Serious: Yes (Disabling, Other)
  Sender: FDA-Public Use
  Company Number: CA-FreseniusKabi-FK202406353

PATIENT
  Age: 61 Year
  Sex: Female
  Weight: 77.11 kg

DRUGS (6)
  1. IDACIO [Suspect]
     Active Substance: ADALIMUMAB-AACF
     Indication: Product used for unknown indication
     Dosage: DOSAGE FORM: SOLUTION ?ROUTE: SUBCUTANEOUS
  2. ADVAIR HFA [Concomitant]
     Active Substance: FLUTICASONE PROPIONATE\SALMETEROL XINAFOATE
     Dosage: NOT SPECIFIED
  3. ALVESCO [Concomitant]
     Active Substance: CICLESONIDE
     Dosage: AEROSOL, METERED DOSE
  4. PANTOPRAZOLE [Concomitant]
     Active Substance: PANTOPRAZOLE
     Dosage: NOT SPECIFIED
  5. REACTINE [Concomitant]
     Dosage: NOT SPECIFIED
  6. VENTOLIN [Concomitant]
     Active Substance: ALBUTEROL SULFATE
     Dosage: NOT SPECIFIED?INHALATION

REACTIONS (5)
  - Abdominal distension [Recovered/Resolved]
  - Asthma [Recovered/Resolved]
  - Constipation [Recovered/Resolved]
  - Flatulence [Recovered/Resolved]
  - Weight increased [Recovered/Resolved]
